FAERS Safety Report 12401296 (Version 1)
Quarter: 2016Q2

REPORT INFORMATION
  Report Type: Spontaneous
  Country: FR (occurrence: FR)
  Receive Date: 20160525
  Receipt Date: 20160525
  Transmission Date: 20160815
  Serious: Yes (Death, Other)
  Sender: FDA-Public Use
  Company Number: FR-MDT-ADR-2016-00932

PATIENT
  Age: 50 Year
  Sex: Female

DRUGS (7)
  1. SERESTA [Concomitant]
     Active Substance: OXAZEPAM
  2. DEPAMIDE [Concomitant]
     Active Substance: VALPROMIDE
  3. ESPERAL [Concomitant]
     Active Substance: DISULFIRAM
  4. INEXIUM [Concomitant]
     Active Substance: ESOMEPRAZOLE
  5. VENTOLINE [Concomitant]
     Active Substance: ALBUTEROL
  6. TERCIAN [Concomitant]
     Active Substance: CYAMEMAZINE
  7. BACLOFEN. [Suspect]
     Active Substance: BACLOFEN
     Route: 065

REACTIONS (2)
  - Drug level increased [Unknown]
  - Death [Fatal]
